FAERS Safety Report 4408403-6 (Version None)
Quarter: 2004Q3

REPORT INFORMATION
  Report Type: 
  Country: None (occurrence: None)
  Receive Date: 20040722
  Receipt Date: 20040707
  Transmission Date: 20050211
  Serious: Yes (Hospitalization)
  Sender: FDA-Public Use
  Company Number: USA-2004-0013400

PATIENT
  Age: 50 Year
  Sex: Male
  Weight: 99.8 kg

DRUGS (11)
  1. OXYCONTIN [Suspect]
     Indication: PAIN
     Dosage: 10 MG, TID  : 20 MG, Q8H
     Dates: start: 20010101
  2. PREVACID [Concomitant]
  3. TRAZODONE HCL [Concomitant]
  4. CLONAZEPAM [Concomitant]
  5. ZANAFLEX [Concomitant]
  6. INDERAL LA [Concomitant]
  7. EXCEDRIN (SALICYLAMIDE) [Concomitant]
  8. LOVASTATIN [Concomitant]
  9. UROCRIT [Concomitant]
  10. ASPIRIN ^COX^ [Concomitant]
  11. MULTIPLE VITAMINS (ERGOCALCIFEROL, ASCORBIC ACID, TOCOPHEROL, FOLIC AC [Concomitant]

REACTIONS (1)
  - PULMONARY EMBOLISM [None]
